FAERS Safety Report 24257662 (Version 1)
Quarter: 2024Q3

REPORT INFORMATION
  Report Type: Spontaneous
  Country: CA (occurrence: None)
  Receive Date: 20240828
  Receipt Date: 20240828
  Transmission Date: 20241016
  Serious: Yes (Other)
  Sender: ORION
  Company Number: CA-PFIZER INC-202400241992

PATIENT
  Sex: Male

DRUGS (6)
  1. METHOTREXATE [Suspect]
     Active Substance: METHOTREXATE
     Indication: Juvenile idiopathic arthritis
  2. TOFACITINIB CITRATE [Suspect]
     Active Substance: TOFACITINIB CITRATE
     Indication: Juvenile idiopathic arthritis
  3. CANAKINUMAB [Suspect]
     Active Substance: CANAKINUMAB
     Indication: Juvenile idiopathic arthritis
  4. SILTUXIMAB [Suspect]
     Active Substance: SILTUXIMAB
     Indication: Juvenile idiopathic arthritis
  5. TOCILIZUMAB [Suspect]
     Active Substance: TOCILIZUMAB
     Indication: Juvenile idiopathic arthritis
  6. INFLIXIMAB [Concomitant]
     Active Substance: INFLIXIMAB
     Indication: Juvenile idiopathic arthritis

REACTIONS (11)
  - Drug ineffective for unapproved indication [Recovered/Resolved]
  - Arthritis [Recovered/Resolved]
  - Atlantoaxial instability [Recovered/Resolved]
  - Cataract [Recovered/Resolved]
  - Cushingoid [Recovered/Resolved]
  - Hepatic steatosis [Recovered/Resolved]
  - Hypertension [Recovered/Resolved]
  - Osteopenia [Recovered/Resolved]
  - Osteoporotic fracture [Recovered/Resolved]
  - Short stature [Recovered/Resolved]
  - Product use in unapproved indication [Unknown]
